FAERS Safety Report 8886577 (Version 8)
Quarter: 2013Q4

REPORT INFORMATION
  Report Type: Report from Study
  Country: US (occurrence: US)
  Receive Date: 20121105
  Receipt Date: 20131121
  Transmission Date: 20140711
  Serious: Yes (Hospitalization)
  Sender: FDA-Public Use
  Company Number: US-ACTELION-A-NJ2012-73566

PATIENT
  Age: 77 Year
  Sex: Female

DRUGS (5)
  1. TRACLEER [Suspect]
     Indication: PULMONARY HYPERTENSION
     Dosage: UNK
     Route: 048
     Dates: start: 2002
  2. TYVASO [Suspect]
  3. ADCIRCA [Concomitant]
  4. COUMADIN [Concomitant]
     Dosage: 8 MG, QD
     Dates: end: 20130217
  5. COUMADIN [Concomitant]
     Dosage: 4 MG, QD
     Dates: start: 20130218

REACTIONS (13)
  - Ovarian cancer [Unknown]
  - Ovarian operation [Unknown]
  - Colon cancer [Unknown]
  - Colon operation [Unknown]
  - Colostomy closure [Unknown]
  - Transfusion [Unknown]
  - Tremor [Unknown]
  - Throat tightness [Unknown]
  - Oropharyngeal pain [Unknown]
  - Anticoagulant therapy [Recovered/Resolved]
  - Chemotherapy [Unknown]
  - Dyspnoea [Unknown]
  - Palpitations [Unknown]
